FAERS Safety Report 22060143 (Version 1)
Quarter: 2023Q1

REPORT INFORMATION
  Report Type: Spontaneous
  Country: US (occurrence: None)
  Receive Date: 20230302
  Receipt Date: 20230302
  Transmission Date: 20230417
  Serious: Yes (Other)
  Sender: FDA-Public Use
  Company Number: None

PATIENT
  Age: 52 Year
  Sex: Female
  Weight: 64.41 kg

DRUGS (3)
  1. MOUNJARO [Suspect]
     Active Substance: TIRZEPATIDE
  2. Mounjaro [Concomitant]
  3. freestyle Libre 3 [Concomitant]

REACTIONS (2)
  - Inability to afford medication [None]
  - Product supply issue [None]

NARRATIVE: CASE EVENT DATE: 20230302
